FAERS Safety Report 20434365 (Version 9)
Quarter: 2022Q3

REPORT INFORMATION
  Report Type: Report from Study
  Country: US (occurrence: US)
  Receive Date: 20220206
  Receipt Date: 20220811
  Transmission Date: 20221027
  Serious: Yes (Hospitalization, Other)
  Sender: FDA-Public Use
  Company Number: US-NOVARTISTESTPH-NVSC2022US025055

PATIENT
  Age: 76 Year
  Sex: Male

DRUGS (8)
  1. ENTRESTO [Suspect]
     Active Substance: SACUBITRIL\VALSARTAN
     Indication: Product used for unknown indication
     Dosage: 1 DOSAGE FORM, BID (24/26MG)
     Route: 065
  2. ENTRESTO [Suspect]
     Active Substance: SACUBITRIL\VALSARTAN
     Dosage: 1 DOSAGE FORM, BID
     Route: 065
  3. METFORMIN [Suspect]
     Active Substance: METFORMIN HYDROCHLORIDE
     Indication: Diabetes mellitus
     Dosage: UNK
     Route: 065
  4. SPIRONOLACTONE [Suspect]
     Active Substance: SPIRONOLACTONE
     Indication: Product used for unknown indication
     Dosage: UNK
     Route: 065
  5. TORSEMIDE [Suspect]
     Active Substance: TORSEMIDE
     Indication: Product used for unknown indication
     Dosage: UNK
     Route: 065
     Dates: start: 2022
  6. FLOMAX [Suspect]
     Active Substance: TAMSULOSIN HYDROCHLORIDE
     Indication: Product used for unknown indication
     Dosage: UNK
     Route: 065
  7. INSULIN NOS [Suspect]
     Active Substance: INSULIN NOS
     Indication: Diabetes mellitus
     Route: 065
  8. SINGULAIR [Suspect]
     Active Substance: MONTELUKAST SODIUM
     Indication: Hypersensitivity
     Dosage: UNK UNK, QD
     Route: 065

REACTIONS (20)
  - Hypervolaemia [Unknown]
  - Dyspnoea [Unknown]
  - Faecaloma [Unknown]
  - Urinary retention [Unknown]
  - Ejection fraction decreased [Unknown]
  - Parkinson^s disease [Unknown]
  - Muscular weakness [Unknown]
  - Hypoacusis [Unknown]
  - Fall [Unknown]
  - Gait disturbance [Unknown]
  - Dysstasia [Unknown]
  - Skin laceration [Unknown]
  - Contusion [Unknown]
  - Fatigue [Unknown]
  - Cough [Unknown]
  - Urticaria [Recovered/Resolved]
  - Faeces soft [Unknown]
  - Hypotension [Unknown]
  - Weight decreased [Unknown]
  - Skin atrophy [Unknown]

NARRATIVE: CASE EVENT DATE: 20220501
